FAERS Safety Report 15644351 (Version 1)
Quarter: 2018Q4

REPORT INFORMATION
  Report Type: Spontaneous
  Country: US (occurrence: US)
  Receive Date: 20181121
  Receipt Date: 20181121
  Transmission Date: 20190205
  Serious: Yes (Other)
  Sender: FDA-Public Use
  Company Number: US-BAYER-2018-216284

PATIENT
  Age: 27 Year
  Sex: Female
  Weight: 72 kg

DRUGS (2)
  1. PROPOFOL. [Concomitant]
     Active Substance: PROPOFOL
     Indication: INDUCTION OF ANAESTHESIA
  2. GADOBUTROL. [Suspect]
     Active Substance: GADOBUTROL
     Indication: NUCLEAR MAGNETIC RESONANCE IMAGING ABDOMINAL

REACTIONS (1)
  - Anaphylactic reaction [Recovered/Resolved]
